FAERS Safety Report 7681597-5 (Version None)
Quarter: 2011Q3

REPORT INFORMATION
  Report Type: 
  Country: None (occurrence: None)
  Receive Date: 20110812
  Receipt Date: 20110801
  Transmission Date: 20111222
  Serious: Yes (Hospitalization)
  Sender: FDA-Public Use
  Company Number: PHEH2011US00598

PATIENT
  Age: 60 Year
  Sex: Female
  Weight: 78.005 kg

DRUGS (2)
  1. LASIX [Interacting]
  2. TOBI [Suspect]
     Dosage: 300 MG, BID (28 DAYS ON AND 28 DAYS OFF)
     Dates: start: 20110411

REACTIONS (2)
  - DRUG INTERACTION [None]
  - FLUID OVERLOAD [None]
